FAERS Safety Report 7306717-3 (Version None)
Quarter: 2011Q1

REPORT INFORMATION
  Report Type: 
  Country: None (occurrence: None)
  Receive Date: 20110222
  Receipt Date: 20110215
  Transmission Date: 20110831
  Serious: Yes (Hospitalization, Other)
  Sender: FDA-Public Use
  Company Number: US-US-EMD SERONO, INC.-231859K09USA

PATIENT
  Sex: Female

DRUGS (5)
  1. REBIF [Suspect]
     Indication: MULTIPLE SCLEROSIS
     Route: 058
     Dates: start: 20040209
  2. SYNTHROID [Concomitant]
  3. CELEBREX [Concomitant]
  4. COZAAR [Concomitant]
  5. PULMICORT [Concomitant]
     Route: 055

REACTIONS (5)
  - MOTOR DYSFUNCTION [None]
  - ANKLE FRACTURE [None]
  - WOUND [None]
  - FATIGUE [None]
  - FALL [None]
